FAERS Safety Report 8601346-3 (Version None)
Quarter: 2012Q3

REPORT INFORMATION
  Report Type: 
  Country: None (occurrence: None)
  Receive Date: 20120817
  Receipt Date: 20120807
  Transmission Date: 20120928
  Serious: Yes (Hospitalization, Other)
  Sender: FDA-Public Use
  Company Number: US-JNJFOC-20120804474

PATIENT
  Age: 16 Year
  Sex: Female
  Weight: 48 kg

DRUGS (2)
  1. VISINE EYE DROPS [Suspect]
     Indication: ACCIDENTAL EXPOSURE
     Route: 048
  2. ALCOHOL [Suspect]
     Indication: PRODUCT USED FOR UNKNOWN INDICATION
     Route: 065

REACTIONS (6)
  - LOSS OF CONSCIOUSNESS [None]
  - SEXUAL ABUSE [None]
  - VOMITING [None]
  - TOXICITY TO VARIOUS AGENTS [None]
  - ACCIDENTAL EXPOSURE [None]
  - LETHARGY [None]
